FAERS Safety Report 16008981 (Version 2)
Quarter: 2019Q1

REPORT INFORMATION
  Report Type: Other
  Country: GB (occurrence: GB)
  Receive Date: 20190224
  Receipt Date: 20190303
  Transmission Date: 20190418
  Serious: Yes (Hospitalization, Other)
  Sender: FDA-Public Use
  Company Number: GB-APOTEX-2019AP008262

PATIENT
  Age: 35 Year
  Sex: Female

DRUGS (10)
  1. OLANZAPINE. [Suspect]
     Active Substance: OLANZAPINE
     Indication: SCHIZOPHRENIA
     Dosage: 5 MG, UNK (DOSAGE FORM: UNSPECIFIED)
     Route: 065
  2. OMEPRAZOLE. [Suspect]
     Active Substance: OMEPRAZOLE
     Indication: PRODUCT USED FOR UNKNOWN INDICATION
     Dosage: UNK (DOSAGE FORM: UNSPECIFIED)
     Route: 065
  3. RISPERIDONE. [Suspect]
     Active Substance: RISPERIDONE
     Indication: SCHIZOPHRENIA
     Dosage: 3 MG, UNK (DOSAGE FORM: UNSPECIFIED)
     Route: 065
  4. SERTRALINE [Suspect]
     Active Substance: SERTRALINE HYDROCHLORIDE
     Dosage: 50 MG, UNK (DOSAGE FORM: UNSPECIFIED)
     Route: 065
  5. OLANZAPINE. [Suspect]
     Active Substance: OLANZAPINE
     Dosage: 10 MG, UNK (DOSAGE FORM: UNSPECIFIED)
     Route: 065
  6. SERTRALINE [Suspect]
     Active Substance: SERTRALINE HYDROCHLORIDE
     Indication: SCHIZOPHRENIA
     Dosage: 100 MG, UNK (DOSAGE FORM: UNSPECIFIED)
     Route: 065
  7. OLANZAPINE. [Suspect]
     Active Substance: OLANZAPINE
     Dosage: 15 MG, UNK (DOSAGE FORM: UNSPECIFIED)
     Route: 065
  8. SERTRALINE [Suspect]
     Active Substance: SERTRALINE HYDROCHLORIDE
     Dosage: 150 MG, UNK (DOSAGE FORM: UNSPECIFIED)
     Route: 065
  9. DIAZEPAM. [Suspect]
     Active Substance: DIAZEPAM
     Indication: PRODUCT USED FOR UNKNOWN INDICATION
     Dosage: 5 MG, UNK (DOSAGE FORM: UNSPECIFIED)
     Route: 065
  10. ARIPIPRAZOLE. [Suspect]
     Active Substance: ARIPIPRAZOLE
     Indication: SCHIZOPHRENIA
     Dosage: 10 MG, UNK (DOSAGE FORM: UNSPECIFIED)
     Route: 065

REACTIONS (5)
  - Sepsis [Unknown]
  - Schizophrenia [Unknown]
  - Dehydration [Unknown]
  - Treatment noncompliance [Unknown]
  - Social avoidant behaviour [Unknown]
